FAERS Safety Report 8470144-6 (Version None)
Quarter: 2012Q2

REPORT INFORMATION
  Report Type: 
  Country: None (occurrence: None)
  Receive Date: 20120627
  Receipt Date: 20120619
  Transmission Date: 20120825
  Serious: Yes (Hospitalization)
  Sender: FDA-Public Use
  Company Number: US-BRISTOL-MYERS SQUIBB COMPANY-16661324

PATIENT
  Age: 51 Year
  Sex: Female

DRUGS (1)
  1. ORENCIA [Suspect]
     Dosage: LAST DT OF INJECTION :28FEB12
     Route: 058

REACTIONS (4)
  - RIB FRACTURE [None]
  - FALL [None]
  - SPINAL FRACTURE [None]
  - ASTHMA [None]
